FAERS Safety Report 11775227 (Version 2)
Quarter: 2015Q4

REPORT INFORMATION
  Report Type: Spontaneous
  Country: US (occurrence: US)
  Receive Date: 20151124
  Receipt Date: 20151221
  Transmission Date: 20160304
  Serious: No
  Sender: FDA-Public Use
  Company Number: US-VERTEX PHARMACEUTICALS-2015-005321

PATIENT
  Age: 13 Year
  Sex: Male

DRUGS (6)
  1. VORICONAZOLE. [Concomitant]
     Active Substance: VORICONAZOLE
     Indication: BRONCHOPULMONARY ASPERGILLOSIS
  2. ALBUTEROL. [Concomitant]
     Active Substance: ALBUTEROL
  3. PULMICORT TURBUHALER [Concomitant]
     Active Substance: BUDESONIDE
  4. ORKAMBI [Suspect]
     Active Substance: IVACAFTOR\LUMACAFTOR
     Indication: CYSTIC FIBROSIS
     Dosage: 1 DF, BID
     Route: 048
     Dates: start: 20151103
  5. PULMOZYME [Concomitant]
     Active Substance: DORNASE ALFA
  6. HYPERSAL [Concomitant]

REACTIONS (4)
  - Cough [Recovering/Resolving]
  - Musculoskeletal chest pain [Recovered/Resolved]
  - Lung disorder [Recovered/Resolved]
  - Diarrhoea [Not Recovered/Not Resolved]

NARRATIVE: CASE EVENT DATE: 20151104
